FAERS Safety Report 4323626-2 (Version None)
Quarter: 2004Q1

REPORT INFORMATION
  Report Type: 
  Country: None (occurrence: None)
  Receive Date: 20040326
  Receipt Date: 20030425
  Transmission Date: 20041129
  Serious: Yes (Hospitalization, Other)
  Sender: FDA-Public Use
  Company Number: PHBS2003JP04464

PATIENT
  Age: 47 Year
  Sex: Female

DRUGS (13)
  1. INTERFERON [Suspect]
     Indication: CHRONIC MYELOID LEUKAEMIA
     Dosage: 5X10E6U/3 TIMES A WEEK
     Dates: start: 20030401
  2. GLEEVEC [Suspect]
     Indication: CHRONIC MYELOID LEUKAEMIA
     Dosage: 400 MG/DAY
     Route: 065
     Dates: start: 20030417, end: 20030429
  3. ACINON [Concomitant]
     Dosage: 150 MG/D
     Route: 048
     Dates: start: 20030417
  4. DIART [Concomitant]
     Dosage: 60 MG/D
     Route: 048
     Dates: start: 20030417
  5. ALDACTONE [Concomitant]
     Dosage: 25 MG/D
     Route: 048
     Dates: start: 20030417
  6. LASIX [Concomitant]
     Dosage: 20 MG/D
     Route: 048
     Dates: start: 20030417
  7. LOXONIN [Concomitant]
     Dosage: 120 MG/D
     Route: 048
     Dates: start: 20030417
  8. LOPRESSOR [Concomitant]
     Dosage: 40 MG/D
     Route: 048
     Dates: start: 20030417
  9. VASOLATOR [Concomitant]
     Dosage: 27 MG/D
     Route: 060
     Dates: start: 20030417
  10. ZYLORIC ^FAES^ [Concomitant]
     Dosage: 200 MG/D
     Route: 048
     Dates: start: 20030417
  11. FLOMOX [Concomitant]
     Dosage: 300 MG/D
     Route: 048
     Dates: start: 20030428, end: 20030508
  12. PONTAL [Concomitant]
     Dosage: 750 MG/D
     Route: 048
     Dates: start: 20030428, end: 20030508
  13. OIF [Concomitant]
     Dates: start: 20030430

REACTIONS (7)
  - ANTINUCLEAR ANTIBODY POSITIVE [None]
  - AUTOIMMUNE HEPATITIS [None]
  - BLOOD CREATININE INCREASED [None]
  - BLOOD IMMUNOGLOBULIN G INCREASED [None]
  - BLOOD UREA INCREASED [None]
  - BLOOD URIC ACID INCREASED [None]
  - RENAL IMPAIRMENT [None]
